FAERS Safety Report 6546566-7 (Version None)
Quarter: 2010Q1

REPORT INFORMATION
  Report Type: 
  Country: None (occurrence: None)
  Receive Date: 20100122
  Receipt Date: 20100113
  Transmission Date: 20100710
  Serious: Yes (Hospitalization)
  Sender: FDA-Public Use
  Company Number: DE-AMGEN-US386742

PATIENT
  Age: 58 Year
  Sex: Female

DRUGS (3)
  1. ENBREL [Suspect]
     Indication: RHEUMATOID ARTHRITIS
     Route: 058
     Dates: start: 20091103
  2. ARAVA [Concomitant]
     Indication: RHEUMATOID ARTHRITIS
     Dosage: UNKNOWN
  3. GLUCOCORTICOIDS [Concomitant]
     Indication: RHEUMATOID ARTHRITIS
     Dosage: UNKNOWN

REACTIONS (3)
  - CEREBROVASCULAR ACCIDENT [None]
  - DEMYELINATION [None]
  - GLIOSIS [None]
